FAERS Safety Report 12301417 (Version 1)
Quarter: 2016Q2

REPORT INFORMATION
  Report Type: Spontaneous
  Country: US (occurrence: US)
  Receive Date: 20160425
  Receipt Date: 20160425
  Transmission Date: 20160815
  Serious: Yes (Other)
  Sender: FDA-Public Use
  Company Number: US-ASTELLAS-2015US012112

PATIENT
  Age: 79 Year
  Sex: Female

DRUGS (6)
  1. LEXISCAN [Suspect]
     Active Substance: REGADENOSON
     Indication: DYSPNOEA
  2. CAUMADIN [Concomitant]
     Active Substance: WARFARIN SODIUM
     Indication: COAGULATION TIME PROLONGED
     Dosage: UNK UNK, UNKNOWN FREQ.
     Route: 065
  3. ASPIRIN. [Concomitant]
     Active Substance: ASPIRIN
     Indication: COAGULATION TIME PROLONGED
     Dosage: UNK UNK, UNKNOWN FREQ.
     Route: 065
  4. LOVENOX [Concomitant]
     Active Substance: ENOXAPARIN SODIUM
     Indication: COAGULATION TIME PROLONGED
     Dosage: UNK UNK, UNKNOWN FREQ.
     Route: 065
  5. LEXISCAN [Suspect]
     Active Substance: REGADENOSON
     Indication: CHEST PAIN
  6. LEXISCAN [Suspect]
     Active Substance: REGADENOSON
     Indication: SCAN MYOCARDIAL PERFUSION
     Dosage: 0.4 MG, ONCE DAILY (ONE TIME ONLY)
     Route: 065
     Dates: start: 20150405, end: 20150405

REACTIONS (8)
  - Vision blurred [Unknown]
  - Confusional state [Unknown]
  - Visual impairment [Unknown]
  - Headache [Unknown]
  - Dizziness [Unknown]
  - Feeling jittery [Unknown]
  - Cerebrovascular accident [Unknown]
  - Migraine [Unknown]

NARRATIVE: CASE EVENT DATE: 20150405
